FAERS Safety Report 6378038-7 (Version None)
Quarter: 2009Q3

REPORT INFORMATION
  Report Type: 
  Country: None (occurrence: None)
  Receive Date: 20090921
  Receipt Date: 20090914
  Transmission Date: 20100115
  Serious: Yes (Death)
  Sender: FDA-Public Use
  Company Number: AE-2009-191

PATIENT
  Age: 51 Year
  Sex: Male

DRUGS (4)
  1. METOPROLOL [Suspect]
     Dosage: ORAL
     Route: 048
  2. AMITRIPTYLINE [Suspect]
     Dosage: ORAL
     Route: 048
  3. CLONIDINE [Suspect]
     Dosage: ORAL
     Route: 048
  4. MINOXIDIL [Suspect]
     Dosage: ORAL
     Route: 048

REACTIONS (1)
  - DEATH [None]
